FAERS Safety Report 8431994-5 (Version None)
Quarter: 2012Q2

REPORT INFORMATION
  Report Type: 
  Country: None (occurrence: None)
  Receive Date: 20120613
  Receipt Date: 20111214
  Transmission Date: 20120825
  Serious: No
  Sender: FDA-Public Use
  Company Number: US-ASTRAZENECA-2011SE75754

PATIENT
  Age: 51 Year
  Sex: Female
  Weight: 59.9 kg

DRUGS (2)
  1. RHINOCORT [Suspect]
     Indication: SINUSITIS
     Dosage: ONE SPRAY IN EACH NOSTRIL ONCE A DAY
     Route: 045
  2. ARTIFICIAL TEARS SOLUTION [Concomitant]

REACTIONS (3)
  - OCULAR HYPERAEMIA [None]
  - ACCIDENTAL EXPOSURE [None]
  - OFF LABEL USE [None]
